FAERS Safety Report 8390688-5 (Version None)
Quarter: 2012Q2

REPORT INFORMATION
  Report Type: 
  Country: None (occurrence: None)
  Receive Date: 20120529
  Receipt Date: 20120514
  Transmission Date: 20120825
  Serious: Yes (Hospitalization)
  Sender: FDA-Public Use
  Company Number: FR-JNJFOC-20120517613

PATIENT
  Sex: Male

DRUGS (8)
  1. ACETAMINOPHEN [Suspect]
     Route: 065
  2. FLUINDIONE [Suspect]
     Indication: PULMONARY EMBOLISM
     Route: 048
     Dates: start: 20101201, end: 20110102
  3. FLUINDIONE [Suspect]
     Route: 048
     Dates: start: 20101101, end: 20101101
  4. TINZAPARIN SODIUM [Suspect]
     Indication: PULMONARY EMBOLISM
     Route: 058
     Dates: start: 20110105
  5. TINZAPARIN SODIUM [Suspect]
     Route: 058
     Dates: start: 20101101, end: 20110105
  6. ACETAMINOPHEN [Suspect]
     Indication: PRODUCT USED FOR UNKNOWN INDICATION
     Route: 065
     Dates: start: 20101227
  7. ACETAMINOPHEN AND TRAMADOL HCL [Suspect]
     Indication: PRODUCT USED FOR UNKNOWN INDICATION
     Route: 048
     Dates: start: 20101228
  8. FLUINDIONE [Suspect]
     Route: 048
     Dates: start: 20101101, end: 20101201

REACTIONS (1)
  - DRUG RASH WITH EOSINOPHILIA AND SYSTEMIC SYMPTOMS [None]
